FAERS Safety Report 10340519 (Version 1)
Quarter: 2014Q3

REPORT INFORMATION
  Report Type: Spontaneous
  Country: US (occurrence: None)
  Receive Date: 20140722
  Receipt Date: 20140722
  Transmission Date: 20150326
  Serious: Yes (Hospitalization)
  Sender: FDA-Public Use
  Company Number: IPC201407-000355

PATIENT
  Age: 41 Year
  Sex: Male

DRUGS (6)
  1. METOLAZONE (METOLAZONE) (METOLAZONE) [Suspect]
     Active Substance: METOLAZONE
  2. FUROSEMIDE (FUROSEMIDE) (FUROSEMIDE) [Suspect]
     Active Substance: FUROSEMIDE
  3. SPIRONOLACTONE (SPIRONOLACTONE) (SPIRONOLACTONE) [Suspect]
     Active Substance: SPIRONOLACTONE
  4. ALLOPURINOL (ALLOPURINOL) (ALLOPURINOL) [Suspect]
     Active Substance: ALLOPURINOL
  5. CIPROFLOXACIN (CIPROFLOXACIN) (CIPROFLOXACIN) [Suspect]
     Active Substance: CIPROFLOXACIN
  6. LISINOPRIL (LISINOPRIL) (LISINOPRIL) [Suspect]
     Active Substance: LISINOPRIL

REACTIONS (4)
  - Renal failure acute [None]
  - Nephritis [None]
  - Drug-induced liver injury [None]
  - Drug hypersensitivity [None]
